FAERS Safety Report 6587188-1 (Version None)
Quarter: 2010Q1

REPORT INFORMATION
  Report Type: 
  Country: None (occurrence: None)
  Receive Date: 20100217
  Receipt Date: 20090520
  Transmission Date: 20100710
  Serious: No
  Sender: FDA-Public Use
  Company Number: US-ALLERGAN-0906115US

PATIENT
  Age: 53 Year
  Sex: Female
  Weight: 58.957 kg

DRUGS (1)
  1. BOTOX COSMETIC [Suspect]
     Indication: SKIN WRINKLING
     Dosage: 44 UNITS, SINGLE
     Route: 030
     Dates: start: 20090418, end: 20090418

REACTIONS (2)
  - EYELID PTOSIS [None]
  - FACIAL PARESIS [None]
